FAERS Safety Report 8624562-3 (Version None)
Quarter: 2012Q3

REPORT INFORMATION
  Report Type: 
  Country: None (occurrence: None)
  Receive Date: 20120827
  Receipt Date: 20120821
  Transmission Date: 20120928
  Serious: Yes (Other)
  Sender: FDA-Public Use
  Company Number: US-JNJFOC-20120806184

PATIENT
  Sex: Male

DRUGS (1)
  1. BENGAY UNSPECIFIED [Suspect]
     Indication: PRODUCT USED FOR UNKNOWN INDICATION
     Route: 061

REACTIONS (3)
  - DYSPHONIA [None]
  - HYPERSENSITIVITY [None]
  - DYSPNOEA [None]
